FAERS Safety Report 4889712-3 (Version None)
Quarter: 2006Q1

REPORT INFORMATION
  Report Type: 
  Country: None (occurrence: None)
  Receive Date: 20060120
  Receipt Date: 20060108
  Transmission Date: 20060701
  Serious: Yes (Death)
  Sender: FDA-Public Use
  Company Number: 2006S1000172

PATIENT
  Age: 58 Year
  Sex: Male
  Weight: 81.6475 kg

DRUGS (19)
  1. FENTANYL TRANSDERMAL SYSTEM [Suspect]
     Indication: CERVICAL SPINAL STENOSIS
     Dosage: 50 UG/HR;X1; TRANS
     Route: 062
     Dates: start: 20051230, end: 20051230
  2. CALCIUM ACETATE [Concomitant]
  3. FOLIC ACID [Concomitant]
  4. BENZONATATE [Concomitant]
  5. ATORVASTATIN CALCIUM [Concomitant]
  6. NIFEDIPINE [Concomitant]
  7. ZOLPIDEM TARTRATE [Concomitant]
  8. BUMETANIDE [Concomitant]
  9. CYANOCOBALAMIN-TANNIN COMPLEX [Concomitant]
  10. ASCORBIC ACID/FOLIC ACID/VITAMIN B NOS [Concomitant]
  11. PYRIDOXINE HYDROCHLORIDE INJ [Concomitant]
  12. SEVELAMER HYDROCHLORIDE [Concomitant]
  13. LOSARTAN POTASSIUM [Concomitant]
  14. AZITHROMYCIN [Concomitant]
  15. CARVEDILOL [Concomitant]
  16. INSULIN LISPRO [Concomitant]
  17. INSULIN GLARGINE [Concomitant]
  18. BUDESONIDE [Concomitant]
  19. IBUPROFEN [Concomitant]

REACTIONS (14)
  - ABASIA [None]
  - BLOOD POTASSIUM INCREASED [None]
  - BRAIN DEATH [None]
  - CARDIO-RESPIRATORY ARREST [None]
  - CEREBROVASCULAR ACCIDENT [None]
  - DEPRESSED LEVEL OF CONSCIOUSNESS [None]
  - DISORIENTATION [None]
  - DYSSTASIA [None]
  - LOSS OF CONSCIOUSNESS [None]
  - MYOCARDIAL INFARCTION [None]
  - OVERDOSE [None]
  - SLEEP APNOEA SYNDROME [None]
  - SNORING [None]
  - VOMITING [None]
